FAERS Safety Report 20254553 (Version 6)
Quarter: 2022Q1

REPORT INFORMATION
  Report Type: Report from Study
  Country: CH (occurrence: CH)
  Receive Date: 20211230
  Receipt Date: 20220215
  Transmission Date: 20220423
  Serious: Yes (Hospitalization)
  Sender: FDA-Public Use
  Company Number: CH-ABBVIE-21K-151-4214364-00

PATIENT
  Sex: Male

DRUGS (3)
  1. CARBIDOPA\LEVODOPA [Suspect]
     Active Substance: CARBIDOPA\LEVODOPA
     Indication: Parkinson^s disease
     Route: 050
     Dates: start: 20161128
  2. CARBIDOPA\LEVODOPA [Suspect]
     Active Substance: CARBIDOPA\LEVODOPA
     Dosage: MD: 7 ML, CRD: 3 ML/H, CRN: 0 ML/H, ED: 2 ML
     Route: 050
     Dates: start: 20210802, end: 20211225
  3. CARBIDOPA\LEVODOPA [Suspect]
     Active Substance: CARBIDOPA\LEVODOPA
     Dosage: MD: 7 ML, CRD: 2.8 ML/H, CRN: 0 ML/H, ED: 2 ML
     Route: 050
     Dates: start: 20211225

REACTIONS (8)
  - COVID-19 [Recovered/Resolved]
  - Off label use [Unknown]
  - General physical health deterioration [Unknown]
  - Parkinson^s disease [Unknown]
  - Device physical property issue [Recovered/Resolved]
  - Device dislocation [Recovered/Resolved]
  - Dyskinesia [Recovering/Resolving]
  - Gait disturbance [Unknown]

NARRATIVE: CASE EVENT DATE: 20210101
